FAERS Safety Report 8640730 (Version 4)
Quarter: 2014Q2

REPORT INFORMATION
  Report Type: Spontaneous
  Country: JP (occurrence: JP)
  Receive Date: 20120628
  Receipt Date: 20140530
  Transmission Date: 20141212
  Serious: Yes (Hospitalization)
  Sender: FDA-Public Use
  Company Number: JP-JNJFOC-20120612583

PATIENT
  Age: 76 Year
  Sex: Male
  Weight: 60 kg

DRUGS (8)
  1. CRAVIT [Suspect]
     Indication: C-REACTIVE PROTEIN INCREASED
     Route: 065
     Dates: start: 20120604
  2. CRAVIT [Suspect]
     Indication: C-REACTIVE PROTEIN INCREASED
     Route: 065
     Dates: start: 20120416
  3. VELCADE [Suspect]
     Indication: PLASMA CELL MYELOMA
     Route: 042
     Dates: start: 20120327, end: 20120417
  4. VELCADE [Suspect]
     Indication: PLASMA CELL MYELOMA
     Route: 042
     Dates: start: 20120514, end: 20120604
  5. VELCADE [Suspect]
     Indication: PLASMA CELL MYELOMA
     Route: 042
     Dates: start: 20120306, end: 20120316
  6. DECADRON [Concomitant]
     Indication: PLASMA CELL MYELOMA
     Route: 048
     Dates: start: 20120514, end: 20120605
  7. DECADRON [Concomitant]
     Indication: PLASMA CELL MYELOMA
     Route: 048
     Dates: start: 20120327, end: 20120418
  8. DECADRON [Concomitant]
     Indication: PLASMA CELL MYELOMA
     Route: 048
     Dates: start: 20120306, end: 20120317

REACTIONS (4)
  - C-reactive protein increased [Not Recovered/Not Resolved]
  - Interstitial lung disease [Recovering/Resolving]
  - Off label use [Unknown]
  - Hypotension [Unknown]
